FAERS Safety Report 11532079 (Version 1)
Quarter: 2015Q3

REPORT INFORMATION
  Report Type: Spontaneous
  Country: US (occurrence: US)
  Receive Date: 20150921
  Receipt Date: 20150921
  Transmission Date: 20151125
  Serious: Yes (Other)
  Sender: FDA-Public Use
  Company Number: US-TEVA-529227USA

PATIENT
  Age: 63 Year
  Sex: Female
  Weight: 62.65 kg

DRUGS (11)
  1. VENLAFAXINE [Suspect]
     Active Substance: VENLAFAXINE HYDROCHLORIDE
     Indication: ANXIETY
     Route: 065
     Dates: start: 20140131, end: 20140131
  2. VENLAFAXINE [Suspect]
     Active Substance: VENLAFAXINE HYDROCHLORIDE
     Dosage: 12.5 MILLIGRAM DAILY;
     Route: 065
  3. VENLAFAXINE [Suspect]
     Active Substance: VENLAFAXINE HYDROCHLORIDE
     Dosage: 12.5 MG EVERY 48 HOURS
     Route: 065
  4. VENLAFAXINE [Suspect]
     Active Substance: VENLAFAXINE HYDROCHLORIDE
     Dosage: 50 MILLIGRAM DAILY;
     Route: 065
  5. VENLAFAXINE [Suspect]
     Active Substance: VENLAFAXINE HYDROCHLORIDE
     Dosage: 25 MILLIGRAM DAILY;
     Route: 065
  6. EFFEXOR XR [Suspect]
     Active Substance: VENLAFAXINE HYDROCHLORIDE
     Indication: ANXIETY
     Dosage: 37.5  DAILY;
     Route: 065
     Dates: start: 2006
  7. SYNTHROID [Concomitant]
     Active Substance: LEVOTHYROXINE SODIUM
     Dosage: 88 MICROGRAM DAILY;
  8. EFFEXOR XR [Suspect]
     Active Substance: VENLAFAXINE HYDROCHLORIDE
     Dosage: 75  DAILY;
     Dates: start: 20140201
  9. KLONOPIN [Suspect]
     Active Substance: CLONAZEPAM
     Dosage: .0027 MILLIGRAM DAILY;
     Dates: start: 201402
  10. CLONAZEPAM. [Suspect]
     Active Substance: CLONAZEPAM
     Dosage: .25 MILLIGRAM DAILY;
     Route: 065
     Dates: start: 201402
  11. EFFEXOR XR [Suspect]
     Active Substance: VENLAFAXINE HYDROCHLORIDE
     Dosage: 37.5  DAILY;
     Dates: start: 20140130, end: 20140130

REACTIONS (26)
  - Insomnia [Unknown]
  - Psychomotor hyperactivity [Not Recovered/Not Resolved]
  - Suicidal ideation [Unknown]
  - Burning sensation [Not Recovered/Not Resolved]
  - Oropharyngeal pain [Recovered/Resolved]
  - Psychomotor hyperactivity [Unknown]
  - Palpitations [Not Recovered/Not Resolved]
  - Drug ineffective [Unknown]
  - Somnolence [Unknown]
  - Feeling abnormal [Not Recovered/Not Resolved]
  - Influenza like illness [Not Recovered/Not Resolved]
  - Feeling abnormal [Not Recovered/Not Resolved]
  - Anxiety [Not Recovered/Not Resolved]
  - Weight decreased [Recovered/Resolved]
  - Feeling abnormal [Unknown]
  - Insomnia [Unknown]
  - Withdrawal syndrome [Not Recovered/Not Resolved]
  - Depressed mood [Unknown]
  - Headache [Not Recovered/Not Resolved]
  - Depression [Not Recovered/Not Resolved]
  - Thyroid disorder [Unknown]
  - Anxiety [Not Recovered/Not Resolved]
  - Feeling hot [Unknown]
  - Nausea [Not Recovered/Not Resolved]
  - Malaise [Not Recovered/Not Resolved]
  - Crying [Not Recovered/Not Resolved]

NARRATIVE: CASE EVENT DATE: 20140131
